FAERS Safety Report 4603113-4 (Version None)
Quarter: 2005Q1

REPORT INFORMATION
  Report Type: 
  Country: None (occurrence: None)
  Receive Date: 20050307
  Receipt Date: 20050224
  Transmission Date: 20050727
  Serious: Yes (Other)
  Sender: FDA-Public Use
  Company Number: 2005-00094

PATIENT
  Age: 72 Year
  Sex: Female
  Weight: 60 kg

DRUGS (8)
  1. VELCADE [Suspect]
     Indication: MULTIPLE MYELOMA
     Dosage: 2.10 MG, INTRAVENOUS
     Route: 042
     Dates: start: 20050110, end: 20050117
  2. HYDROMORPHONE HCL [Concomitant]
  3. AMLODIPINE [Concomitant]
  4. ENALAPRIL MALEATE [Concomitant]
  5. PANTOPRAZOLE (PANTOPRAZOLE) [Concomitant]
  6. SERTRALINE HCL [Concomitant]
  7. TORSEMIDE [Concomitant]
  8. URAPIDIL (URAPIDIL) [Concomitant]

REACTIONS (7)
  - ABSCESS LIMB [None]
  - HAEMOGLOBIN DECREASED [None]
  - METASTASES TO MUSCLE [None]
  - MONARTHRITIS [None]
  - MUSCLE NECROSIS [None]
  - PAIN IN EXTREMITY [None]
  - PLATELET COUNT DECREASED [None]
